FAERS Safety Report 11710996 (Version 1)
Quarter: 2015Q4

REPORT INFORMATION
  Report Type: Spontaneous
  Country: US (occurrence: US)
  Receive Date: 20151104
  Receipt Date: 20151104
  Transmission Date: 20160304
  Serious: No
  Sender: FDA-Public Use
  Company Number: US-ELI_LILLY_AND_COMPANY-US201105000974

PATIENT
  Sex: Female

DRUGS (3)
  1. TRIAMTEREN HCT [Concomitant]
     Dosage: UNK
  2. FORTEO [Suspect]
     Active Substance: TERIPARATIDE
     Indication: OSTEOPOROSIS
     Dosage: UNK, QD
     Dates: start: 201012
  3. RAMIPRIL. [Concomitant]
     Active Substance: RAMIPRIL
     Indication: CARDIAC FAILURE CONGESTIVE
     Dosage: 5 MG, UNK

REACTIONS (6)
  - Muscle disorder [Unknown]
  - Blood pressure increased [Unknown]
  - Anxiety [Unknown]
  - Mental disorder [Unknown]
  - Visual impairment [Unknown]
  - Blood cholesterol increased [Unknown]
